FAERS Safety Report 8091355-8 (Version None)
Quarter: 2012Q1

REPORT INFORMATION
  Report Type: 
  Country: None (occurrence: None)
  Receive Date: 20120129
  Receipt Date: 20111031
  Transmission Date: 20120608
  Serious: No
  Sender: FDA-Public Use
  Company Number: US-ABBOTT-11P-163-0870607-00

PATIENT
  Sex: Female
  Weight: 63.56 kg

DRUGS (2)
  1. HUMIRA [Suspect]
     Indication: RHEUMATOID ARTHRITIS
     Route: 058
     Dates: start: 20100408, end: 20111031
  2. HUMIRA [Suspect]
     Dates: start: 20100408

REACTIONS (4)
  - WEIGHT DECREASED [None]
  - MEMORY IMPAIRMENT [None]
  - AMNESIA [None]
  - PRURITUS [None]
